FAERS Safety Report 22392339 (Version 2)
Quarter: 2023Q2

REPORT INFORMATION
  Report Type: Report from Study
  Country: AR (occurrence: AR)
  Receive Date: 20230601
  Receipt Date: 20230621
  Transmission Date: 20230721
  Serious: Yes (Hospitalization, Other)
  Sender: FDA-Public Use
  Company Number: AR-TAKEDA-2023TUS053727

PATIENT
  Age: 1 Year
  Sex: Male
  Weight: 6.8 kg

DRUGS (1)
  1. HUMAN IMMUNOGLOBULIN G\HYALURONIDASE RECOMBINANT HUMAN [Suspect]
     Active Substance: HUMAN IMMUNOGLOBULIN G\HYALURONIDASE RECOMBINANT HUMAN
     Indication: Combined immunodeficiency
     Dosage: 2.5 GRAM, Q4WEEKS
     Route: 058
     Dates: start: 20230302

REACTIONS (4)
  - Cardiac failure [Recovered/Resolved]
  - Secretion discharge [Recovered/Resolved]
  - Heart rate abnormal [Recovered/Resolved]
  - Oxygen saturation decreased [Recovered/Resolved]

NARRATIVE: CASE EVENT DATE: 20230526
